FAERS Safety Report 5824505-1 (Version None)
Quarter: 2008Q3

REPORT INFORMATION
  Report Type: 
  Country: None (occurrence: None)
  Receive Date: 20080728
  Receipt Date: 20080723
  Transmission Date: 20090109
  Serious: Yes (Death)
  Sender: FDA-Public Use
  Company Number: ES-JNJFOC-20080705991

PATIENT
  Age: 2 Year
  Sex: Male

DRUGS (1)
  1. DOXORUBICIN HCL [Suspect]
     Indication: RENAL NEOPLASM
     Dosage: 6TH DOSE
     Route: 042

REACTIONS (1)
  - MEDICATION ERROR [None]
